FAERS Safety Report 8447671-0 (Version None)
Quarter: 2012Q2

REPORT INFORMATION
  Report Type: 
  Country: None (occurrence: None)
  Receive Date: 20120619
  Receipt Date: 20120612
  Transmission Date: 20120825
  Serious: Yes (Other)
  Sender: FDA-Public Use
  Company Number: CA-PFIZER INC-2012141456

PATIENT
  Age: 67 Year
  Sex: Male
  Weight: 90.703 kg

DRUGS (13)
  1. CLONAZEPAM [Concomitant]
     Dosage: 0.5 MG, UNK
  2. PERINDOPRIL ERBUMINE [Concomitant]
     Dosage: 4 MG, UNK
  3. DOMPERIDONE [Concomitant]
     Dosage: 10 MG, UNK
  4. LANSOPRAZOLE [Concomitant]
     Dosage: 30 MG, UNK
  5. TRIAZIDE [Concomitant]
     Dosage: 4 MG, UNK
  6. BISOPROLOL [Concomitant]
     Dosage: 5 MG, UNK
  7. LYRICA [Suspect]
     Indication: PAIN
     Dosage: 75 MG, 1X/DAY
     Route: 048
     Dates: start: 20020101
  8. LYRICA [Suspect]
     Indication: MULTIPLE SCLEROSIS
  9. BACLOFEN [Concomitant]
     Dosage: 1 MG, UNK
  10. GABAPENTIN [Concomitant]
     Dosage: 300 MG, UNK
  11. ELAVIL [Concomitant]
     Dosage: 50 MG, UNK
  12. DANTRIUM [Concomitant]
     Dosage: 100 MG, UNK
  13. DETROL [Concomitant]
     Dosage: 2 MG, UNK

REACTIONS (4)
  - ERYTHEMA [None]
  - MUSCLE TIGHTNESS [None]
  - HIP SURGERY [None]
  - OEDEMA PERIPHERAL [None]
